FAERS Safety Report 6480195-9 (Version None)
Quarter: 2009Q4

REPORT INFORMATION
  Report Type: 
  Country: None (occurrence: None)
  Receive Date: 20091208
  Receipt Date: 20091202
  Transmission Date: 20100525
  Serious: Yes (Hospitalization)
  Sender: FDA-Public Use
  Company Number: US-GILEAD-2009-0025804

PATIENT
  Sex: Male
  Weight: 100.11 kg

DRUGS (15)
  1. LETAIRIS [Suspect]
     Indication: PULMONARY ARTERIAL HYPERTENSION
     Dates: start: 20090522
  2. DIGOXIN [Concomitant]
  3. DILTIAZEM [Concomitant]
  4. BACTRIM [Concomitant]
  5. CELLCEPT [Concomitant]
  6. REVATIO [Concomitant]
  7. ZYVOX [Concomitant]
  8. CIPRO [Concomitant]
  9. REGLAN [Concomitant]
  10. NEXIUM [Concomitant]
  11. FLOMAX [Concomitant]
  12. MAGNESIUM OXIDE [Concomitant]
  13. NYSTATIN [Concomitant]
  14. MEGACE [Concomitant]
  15. PREDNISONE [Concomitant]

REACTIONS (1)
  - TUBERCULOSIS [None]
